FAERS Safety Report 10466088 (Version 1)
Quarter: 2014Q3

REPORT INFORMATION
  Report Type: Spontaneous
  Country: CA (occurrence: CA)
  Receive Date: 20140922
  Receipt Date: 20140922
  Transmission Date: 20150326
  Serious: Yes (Death)
  Sender: FDA-Public Use
  Company Number: CA-ROCHE-1464502

PATIENT
  Age: 60 Year
  Sex: Male

DRUGS (5)
  1. PEGASYS [Suspect]
     Active Substance: PEGINTERFERON ALFA-2A
     Indication: PRODUCT USED FOR UNKNOWN INDICATION
     Route: 065
  2. RIBAVIRIN. [Suspect]
     Active Substance: RIBAVIRIN
     Indication: PRODUCT USED FOR UNKNOWN INDICATION
     Route: 048
  3. PEGINTERFERON ALFA-2B [Suspect]
     Active Substance: PEGINTERFERON ALFA-2B
     Indication: PRODUCT USED FOR UNKNOWN INDICATION
     Route: 048
  4. RIBAVIRIN. [Suspect]
     Active Substance: RIBAVIRIN
     Indication: PRODUCT USED FOR UNKNOWN INDICATION
     Route: 065
  5. VICTRELIS [Suspect]
     Active Substance: BOCEPREVIR
     Indication: PRODUCT USED FOR UNKNOWN INDICATION
     Route: 048

REACTIONS (1)
  - Hepatic cancer [Fatal]
